FAERS Safety Report 6228466-5 (Version None)
Quarter: 2009Q2

REPORT INFORMATION
  Report Type: 
  Country: None (occurrence: None)
  Receive Date: 20090612
  Receipt Date: 20090605
  Transmission Date: 20091009
  Serious: Yes (Disabling)
  Sender: FDA-Public Use
  Company Number: US-GILEAD-2009-0022461

PATIENT
  Sex: Female

DRUGS (14)
  1. LETAIRIS [Suspect]
     Indication: PULMONARY ARTERIAL HYPERTENSION
     Route: 048
     Dates: start: 20090525, end: 20090530
  2. LETAIRIS [Suspect]
     Route: 048
     Dates: start: 20090430
  3. FUROSEMIDE [Concomitant]
  4. HYZAAR [Concomitant]
  5. LABETALOL HCL [Concomitant]
  6. ATENOLOL [Concomitant]
  7. ASPIRIN [Concomitant]
  8. METFORMIN HYDROCHLORIDE [Concomitant]
  9. OMEPRAZOLE [Concomitant]
  10. COD LIVER OIL [Concomitant]
  11. ASCORBIC ACID [Concomitant]
  12. IRON [Concomitant]
  13. VITAMIN D [Concomitant]
  14. CALTRATE 600 [Concomitant]

REACTIONS (4)
  - ASTHENIA [None]
  - DYSPNOEA [None]
  - HEADACHE [None]
  - NAUSEA [None]
